FAERS Safety Report 19232706 (Version 10)
Quarter: 2022Q1

REPORT INFORMATION
  Report Type: Report from Study
  Country: US (occurrence: US)
  Receive Date: 20210507
  Receipt Date: 20220310
  Transmission Date: 20220423
  Serious: No
  Sender: FDA-Public Use
  Company Number: NVSC2021US103353

PATIENT
  Sex: Female

DRUGS (2)
  1. COSENTYX [Suspect]
     Active Substance: SECUKINUMAB
     Indication: Psoriasis
     Dosage: 300 MG, QW (QW X 5 WEEKS)
     Route: 058
     Dates: start: 20210505
  2. COSENTYX [Suspect]
     Active Substance: SECUKINUMAB
     Dosage: 300 MG, Q4W ( THEN EVERY 4W)
     Route: 058

REACTIONS (9)
  - Asthenia [Unknown]
  - Limb discomfort [Unknown]
  - Fatigue [Unknown]
  - Skin lesion [Unknown]
  - Pruritus [Unknown]
  - Injection site bruising [Unknown]
  - Arthralgia [Unknown]
  - Contusion [Unknown]
  - Condition aggravated [Unknown]
